FAERS Safety Report 18352320 (Version 2)
Quarter: 2021Q2

REPORT INFORMATION
  Report Type: Spontaneous
  Country: US (occurrence: US)
  Receive Date: 20201006
  Receipt Date: 20210421
  Transmission Date: 20210717
  Serious: Yes (Hospitalization, Other)
  Sender: FDA-Public Use
  Company Number: US-PURDUE-USA-2020-0169122

PATIENT
  Age: 73 Year
  Sex: Male

DRUGS (11)
  1. BUPRENORPHINE. [Suspect]
     Active Substance: BUPRENORPHINE
     Indication: ANXIETY
     Dosage: 4 MG, DAILY (2MG + 2MG AFTER 2HOURS OF THE FIRST GIVEN DOSE)
     Route: 060
  2. BUPRENORPHINE. [Suspect]
     Active Substance: BUPRENORPHINE
     Indication: WITHDRAWAL SYNDROME
  3. BUPRENORPHINE. [Suspect]
     Active Substance: BUPRENORPHINE
     Indication: INSOMNIA
  4. BUPRENORPHINE. [Suspect]
     Active Substance: BUPRENORPHINE
     Indication: DRUG DEPENDENCE
     Dosage: 4 MG, DAILY (2MG + 2MG AFTER 2HOURS OF THE FIRST GIVEN DOSE)
     Route: 060
  5. BUPRENORPHINE. [Suspect]
     Active Substance: BUPRENORPHINE
     Indication: PAIN
  6. HYDROXYZINE [Concomitant]
     Active Substance: HYDROXYZINE HYDROCHLORIDE
     Indication: WITHDRAWAL SYNDROME
     Dosage: 25 MG, Q12H
  7. BUPRENORPHINE. [Suspect]
     Active Substance: BUPRENORPHINE
     Indication: DRUG WITHDRAWAL SYNDROME
  8. ONDANSETRON [Concomitant]
     Active Substance: ONDANSETRON
     Indication: WITHDRAWAL SYNDROME
     Dosage: 4 MG, PRN [4 MG EVERY 8 HOURS AS NEEDED]
  9. BUPRENORPHINE. [Suspect]
     Active Substance: BUPRENORPHINE
     Indication: DRUG USE DISORDER
  10. BUPRENORPHINE. [Suspect]
     Active Substance: BUPRENORPHINE
     Indication: RESTLESS LEGS SYNDROME
  11. CLONIDINE. [Concomitant]
     Active Substance: CLONIDINE
     Indication: WITHDRAWAL SYNDROME
     Dosage: 0.8 MG, Q8H

REACTIONS (7)
  - Lethargy [Recovered/Resolved]
  - Hypotension [Recovered/Resolved]
  - Somnolence [Recovered/Resolved]
  - Toxicity to various agents [Recovered/Resolved]
  - Respiratory depression [Recovered/Resolved]
  - Haemodynamic instability [Recovered/Resolved]
  - Bradycardia [Recovered/Resolved]
